FAERS Safety Report 22380164 (Version 3)
Quarter: 2023Q2

REPORT INFORMATION
  Report Type: Report from Study
  Country: NL (occurrence: NL)
  Receive Date: 20230529
  Receipt Date: 20230622
  Transmission Date: 20230721
  Serious: Yes (Death, Other)
  Sender: FDA-Public Use
  Company Number: NL-TAKEDA-2023TUS052563

PATIENT
  Age: 41 Year
  Sex: Female

DRUGS (1)
  1. MOBOCERTINIB [Suspect]
     Active Substance: MOBOCERTINIB
     Indication: Non-small cell lung cancer
     Dosage: UNK
     Route: 065
     Dates: start: 20221215, end: 20221215

REACTIONS (3)
  - Non-small cell lung cancer [Fatal]
  - Metastases to central nervous system [Fatal]
  - Drug ineffective [Unknown]
